FAERS Safety Report 5748808-4 (Version None)
Quarter: 2008Q2

REPORT INFORMATION
  Report Type: 
  Country: None (occurrence: None)
  Receive Date: 20080521
  Receipt Date: 20080505
  Transmission Date: 20081010
  Serious: Yes (Death, Other)
  Sender: FDA-Public Use
  Company Number: 2008EU000889

PATIENT
  Age: 43 Year
  Sex: Male

DRUGS (3)
  1. TACROLIMUS [Suspect]
     Indication: RENAL TRANSPLANT
     Dates: start: 20001001
  2. PREDNISOLONE [Suspect]
     Indication: RENAL TRANSPLANT
     Dates: start: 20001001
  3. MYCOPHENOLATE MOFETIL [Suspect]
     Indication: RENAL TRANSPLANT
     Dates: start: 20001001

REACTIONS (7)
  - ANAEMIA [None]
  - ANOREXIA [None]
  - BONE PAIN [None]
  - HAEMODIALYSIS [None]
  - METASTASES TO LUNG [None]
  - PNEUMOTHORAX [None]
  - RENAL CANCER RECURRENT [None]
